FAERS Safety Report 8014360-6 (Version None)
Quarter: 2011Q4

REPORT INFORMATION
  Report Type: 
  Country: None (occurrence: None)
  Receive Date: 20111229
  Receipt Date: 20111218
  Transmission Date: 20120403
  Serious: Yes (Other)
  Sender: FDA-Public Use
  Company Number: PHHY2011GR110318

PATIENT
  Age: 66 Year
  Sex: Female

DRUGS (2)
  1. IMATINIB MESYLATE [Suspect]
     Dosage: 100 MG/DAY
  2. IMATINIB MESYLATE [Suspect]
     Dosage: 400 MG/DAY

REACTIONS (2)
  - RHINITIS ALLERGIC [None]
  - EOSINOPHIL COUNT DECREASED [None]
